FAERS Safety Report 14846259 (Version 3)
Quarter: 2018Q2

REPORT INFORMATION
  Report Type: Spontaneous
  Country: US (occurrence: US)
  Receive Date: 20180504
  Receipt Date: 20180619
  Transmission Date: 20180711
  Serious: No
  Sender: FDA-Public Use
  Company Number: US-TEVA-2018-US-888342

PATIENT
  Sex: Female

DRUGS (1)
  1. APRI [Suspect]
     Active Substance: DESOGESTREL\ETHINYL ESTRADIOL
     Indication: POLYCYSTIC OVARIES
     Dosage: 0.15 MG / 0.03 MG
     Route: 065
     Dates: start: 201710

REACTIONS (5)
  - Folliculitis [Not Recovered/Not Resolved]
  - Product quality issue [Unknown]
  - Acne [Not Recovered/Not Resolved]
  - Malaise [Unknown]
  - Emotional distress [Unknown]

NARRATIVE: CASE EVENT DATE: 201710
